FAERS Safety Report 11686579 (Version 1)
Quarter: 2015Q4

REPORT INFORMATION
  Report Type: Spontaneous
  Country: US (occurrence: US)
  Receive Date: 20151030
  Receipt Date: 20151030
  Transmission Date: 20160304
  Serious: No
  Sender: FDA-Public Use
  Company Number: US-PFIZER INC-2015213361

PATIENT
  Age: 68 Year
  Sex: Female
  Weight: 71 kg

DRUGS (2)
  1. IBRANCE [Suspect]
     Active Substance: PALBOCICLIB
     Dosage: 100 MG, CYCLIC (DAY 1-21 Q 28 DAYS)
     Route: 048
     Dates: start: 20150530
  2. IBRANCE [Suspect]
     Active Substance: PALBOCICLIB
     Indication: BREAST CANCER
     Dosage: 100 MG, CYCLIC (D1-D21 Q28D)
     Route: 048
     Dates: start: 20150624

REACTIONS (1)
  - Fatigue [Unknown]
